FAERS Safety Report 23024780 (Version 1)
Quarter: 2023Q4

REPORT INFORMATION
  Report Type: Spontaneous
  Country: US (occurrence: None)
  Receive Date: 20231004
  Receipt Date: 20231004
  Transmission Date: 20240110
  Serious: Yes (Other)
  Sender: FDA-Public Use
  Company Number: US-ENDO-CASE-0030393

PATIENT
  Sex: Female

DRUGS (5)
  1. ACETAMINOPHEN\OXYCODONE HYDROCHLORIDE [Suspect]
     Active Substance: ACETAMINOPHEN\OXYCODONE HYDROCHLORIDE
  2. PERCOCET [Suspect]
     Active Substance: ACETAMINOPHEN\OXYCODONE HYDROCHLORIDE
  3. HEROIN [Suspect]
     Active Substance: DIAMORPHINE
  4. FENTANYL CITRATE [Suspect]
     Active Substance: FENTANYL CITRATE
  5. OXYCONTIN [Suspect]
     Active Substance: OXYCODONE HYDROCHLORIDE

REACTIONS (6)
  - Injury [Unknown]
  - Dependence [Unknown]
  - Anxiety [Unknown]
  - Depression [Unknown]
  - Post-traumatic stress disorder [Unknown]
  - Road traffic accident [Unknown]
